FAERS Safety Report 4503387-4 (Version None)
Quarter: 2004Q4

REPORT INFORMATION
  Report Type: 
  Country: None (occurrence: None)
  Receive Date: 20041117
  Receipt Date: 20041018
  Transmission Date: 20050328
  Serious: Yes (Other)
  Sender: FDA-Public Use
  Company Number: GB-GLAXOSMITHKLINE-B0348664A

PATIENT
  Age: 66 Year
  Sex: Female

DRUGS (3)
  1. FLIXOTIDE [Suspect]
     Indication: ASTHMA
     Route: 055
     Dates: start: 20011024
  2. SALBUTAMOL [Concomitant]
     Indication: ASTHMA
     Dosage: 2PUFF AS REQUIRED
     Route: 055
     Dates: start: 20011002
  3. CALMURID [Concomitant]
     Indication: ECZEMA
     Route: 061
     Dates: start: 20040723

REACTIONS (2)
  - RETINOPATHY [None]
  - VISUAL DISTURBANCE [None]
